FAERS Safety Report 6248076-3 (Version None)
Quarter: 2009Q2

REPORT INFORMATION
  Report Type: 
  Country: None (occurrence: None)
  Receive Date: 20090628
  Receipt Date: 20090616
  Transmission Date: 20091009
  Serious: Yes (Hospitalization)
  Sender: FDA-Public Use
  Company Number: US-ELI_LILLY_AND_COMPANY-US200904001257

PATIENT
  Sex: Female

DRUGS (9)
  1. ZYPREXA [Suspect]
     Dosage: 10 MG, UNK
     Dates: start: 19970101, end: 20000101
  2. ZYPREXA [Suspect]
     Dosage: 20 MG, UNK
     Dates: start: 19970101, end: 20040101
  3. DEPAKOTE [Concomitant]
     Dosage: 500 MG, UNK
     Dates: start: 20000101
  4. DEPAKOTE [Concomitant]
     Dates: start: 20080801
  5. EFFEXOR [Concomitant]
     Dates: start: 20080801
  6. HALDOL /SCH/ [Concomitant]
     Dosage: 10 MG, UNK
  7. HALDOL /SCH/ [Concomitant]
     Dates: start: 20080801
  8. GLUCOPHAGE [Concomitant]
     Dates: start: 20071227
  9. SEROQUEL [Concomitant]

REACTIONS (6)
  - BLOOD DISORDER [None]
  - DIABETES MELLITUS [None]
  - GLYCOSURIA [None]
  - HYPERGLYCAEMIA [None]
  - VISUAL IMPAIRMENT [None]
  - WEIGHT INCREASED [None]
